FAERS Safety Report 5911875-9 (Version None)
Quarter: 2008Q4

REPORT INFORMATION
  Report Type: 
  Country: None (occurrence: None)
  Receive Date: 20081008
  Receipt Date: 20081001
  Transmission Date: 20090506
  Serious: Yes (Death, Hospitalization)
  Sender: FDA-Public Use
  Company Number: US-BRISTOL-MYERS SQUIBB COMPANY-14281869

PATIENT
  Age: 81 Year
  Sex: Female
  Weight: 59 kg

DRUGS (4)
  1. DASATINIB [Suspect]
     Indication: LEIOMYOSARCOMA METASTATIC
     Dosage: 50MG(LOT#-5M04240),20MG(6A18119), EXP DATE-SEP07
     Route: 048
     Dates: start: 20080613, end: 20080730
  2. SIMVASTATIN [Concomitant]
  3. TOPROL-XL [Concomitant]
  4. CALCIUM [Concomitant]
     Dosage: 1 DOSAGE FORM = 600(UNITS NOT SPECIFIED) FORM-TABLET

REACTIONS (2)
  - DEHYDRATION [None]
  - RENAL FAILURE [None]
